FAERS Safety Report 23082443 (Version 2)
Quarter: 2023Q4

REPORT INFORMATION
  Report Type: Other
  Country: DE (occurrence: None)
  Receive Date: 20231019
  Receipt Date: 20231020
  Transmission Date: 20240109
  Serious: Yes (Hospitalization)
  Sender: FDA-Public Use
  Company Number: DE-ROCHE-3441558

PATIENT
  Age: 59 Year
  Sex: Male
  Weight: 83 kg

DRUGS (5)
  1. ROZLYTREK [Suspect]
     Active Substance: ENTRECTINIB
     Indication: Lung neoplasm malignant
     Dosage: LAST DOSE DATE 03/JUL/2021
     Route: 048
     Dates: start: 20210612
  2. CALCIUM\CHOLECALCIFEROL [Concomitant]
     Active Substance: CALCIUM\CHOLECALCIFEROL
     Route: 048
     Dates: end: 20220928
  3. MOVICOL JUNIOR [Concomitant]
     Route: 048
     Dates: end: 20220928
  4. LORAZEPAM [Concomitant]
     Active Substance: LORAZEPAM
     Indication: Delirium
     Route: 048
     Dates: start: 20220929, end: 20221001
  5. PROMETHAZINE [Concomitant]
     Active Substance: PROMETHAZINE HYDROCHLORIDE
     Indication: Delirium
     Route: 042
     Dates: start: 20221001, end: 20221001

REACTIONS (2)
  - Urinary retention [Recovered/Resolved]
  - Constipation [Recovered/Resolved]

NARRATIVE: CASE EVENT DATE: 20210703
